FAERS Safety Report 25343068 (Version 1)
Quarter: 2025Q2

REPORT INFORMATION
  Report Type: Spontaneous
  Country: US (occurrence: None)
  Receive Date: 20250520
  Receipt Date: 20250520
  Transmission Date: 20250717
  Serious: Yes (Other)
  Sender: FDA-CTU
  Company Number: None

PATIENT
  Age: 42 Year
  Sex: Female
  Weight: 56.25 kg

DRUGS (2)
  1. LEVOCETIRIZINE DIHYDROCHLORIDE [Suspect]
     Active Substance: LEVOCETIRIZINE DIHYDROCHLORIDE
     Indication: Seasonal allergy
     Route: 048
     Dates: start: 20240501, end: 20250516
  2. MIRENA [Concomitant]
     Active Substance: LEVONORGESTREL

REACTIONS (3)
  - Pruritus [None]
  - Urticaria [None]
  - Therapy interrupted [None]

NARRATIVE: CASE EVENT DATE: 20250520
